FAERS Safety Report 20693038 (Version 5)
Quarter: 2023Q2

REPORT INFORMATION
  Report Type: Report from Study
  Country: US (occurrence: US)
  Receive Date: 20220410
  Receipt Date: 20230408
  Transmission Date: 20230721
  Serious: No
  Sender: FDA-Public Use
  Company Number: US-NOVARTISTESTPH-NVSC2022US077944

PATIENT
  Age: 35 Year
  Sex: Female

DRUGS (3)
  1. COSENTYX [Suspect]
     Active Substance: SECUKINUMAB
     Indication: Psoriasis
     Dosage: UNK
     Route: 065
     Dates: end: 202012
  2. COSENTYX [Suspect]
     Active Substance: SECUKINUMAB
     Dosage: UNK (RESUMING WITH LOADING DOSES)
     Route: 065
  3. COSENTYX [Suspect]
     Active Substance: SECUKINUMAB
     Dosage: 300 MG, ONCE/SINGLE
     Route: 058

REACTIONS (8)
  - Erythema [Recovered/Resolved]
  - Feeling hot [Recovered/Resolved]
  - Scar [Unknown]
  - Dermatitis [Unknown]
  - Condition aggravated [Unknown]
  - Skin exfoliation [Unknown]
  - Maternal exposure during pregnancy [Unknown]
  - Therapeutic product effect delayed [Unknown]

NARRATIVE: CASE EVENT DATE: 20210301
